FAERS Safety Report 14949920 (Version 1)
Quarter: 2018Q2

REPORT INFORMATION
  Report Type: Spontaneous
  Country: ES (occurrence: ES)
  Receive Date: 20180530
  Receipt Date: 20180530
  Transmission Date: 20180711
  Serious: Yes (Other)
  Sender: FDA-Public Use
  Company Number: ES-009507513-1805ESP010308

PATIENT
  Age: 92 Year
  Sex: Female

DRUGS (3)
  1. MIRTAZAPINE. [Suspect]
     Active Substance: MIRTAZAPINE
     Dosage: UNK
  2. BILASTINE [Suspect]
     Active Substance: BILASTINE
     Indication: SEASONAL ALLERGY
     Dosage: 10 MG, QD
     Route: 048
  3. ASPIRIN. [Suspect]
     Active Substance: ASPIRIN
     Dosage: UNK

REACTIONS (4)
  - Eye swelling [Recovering/Resolving]
  - Wrong technique in product usage process [Recovered/Resolved]
  - Swelling face [Recovering/Resolving]
  - Dyspnoea [Recovered/Resolved]

NARRATIVE: CASE EVENT DATE: 20180430
